FAERS Safety Report 19325298 (Version 1)
Quarter: 2021Q2

REPORT INFORMATION
  Report Type: Spontaneous
  Country: US (occurrence: US)
  Receive Date: 20210528
  Receipt Date: 20210528
  Transmission Date: 20210717
  Serious: Yes (Other)
  Sender: FDA-Public Use
  Company Number: US-ANXN-000001

PATIENT
  Age: 48 Year
  Sex: Male

DRUGS (2)
  1. SODIUM THIOSULFATE [Suspect]
     Active Substance: SODIUM THIOSULFATE
     Indication: CALCIPHYLAXIS
     Route: 065
  2. SEVELAMER/SEVELAMER HYDROCHLORIDE [Suspect]
     Active Substance: SEVELAMER
     Indication: CALCIPHYLAXIS
     Route: 065

REACTIONS (5)
  - Hyperkalaemia [Unknown]
  - Bacteraemia [Unknown]
  - Haemodialysis [Unknown]
  - Product use in unapproved indication [Unknown]
  - Pulmonary oedema [Unknown]
